FAERS Safety Report 23795660 (Version 1)
Quarter: 2024Q2

REPORT INFORMATION
  Report Type: Other
  Country: CN (occurrence: CN)
  Receive Date: 20240429
  Receipt Date: 20240429
  Transmission Date: 20240716
  Serious: Yes (Hospitalization)
  Sender: FDA-Public Use
  Company Number: CN-BP-2024-CN-38250337

PATIENT
  Age: 53 Year
  Sex: Male

DRUGS (5)
  1. PRIMAQUINE [Suspect]
     Active Substance: PRIMAQUINE
     Indication: Pneumocystis jirovecii pneumonia
     Dosage: 30MG, QD
     Route: 065
  2. CLINDAMYCIN [Suspect]
     Active Substance: CLINDAMYCIN
     Indication: Pneumocystis jirovecii pneumonia
     Dosage: 600 MG, Q8H
     Route: 065
  3. SULFAMETHOXAZOLE\TRIMETHOPRIM [Concomitant]
     Active Substance: SULFAMETHOXAZOLE\TRIMETHOPRIM
     Dosage: 4 DF, Q8H
     Route: 065
  4. METHYLPREDNISOLONE [Concomitant]
     Active Substance: METHYLPREDNISOLONE
     Indication: Rash
     Dosage: 80MG, QD
     Route: 042
  5. METHYLPREDNISOLONE [Concomitant]
     Active Substance: METHYLPREDNISOLONE
     Indication: Oedema

REACTIONS (1)
  - Methaemoglobinaemia [Unknown]
